FAERS Safety Report 9457239 (Version 2)
Quarter: 2013Q3

REPORT INFORMATION
  Report Type: Spontaneous
  Country: US (occurrence: US)
  Receive Date: 20130814
  Receipt Date: 20130924
  Transmission Date: 20140515
  Serious: Yes (Hospitalization, Other)
  Sender: FDA-Public Use
  Company Number: US-BRISTOL-MYERS SQUIBB COMPANY-19167055

PATIENT
  Age: 83 Year
  Sex: Female

DRUGS (11)
  1. COUMADIN [Suspect]
     Indication: PULMONARY EMBOLISM
     Dosage: DURATION OF THERAPY: 1 YEAR AND3-4 MONTHS?1DF:1-2MG,STOPED:LAST WEEK
     Route: 048
     Dates: start: 20120202, end: 2013
  2. LOSARTAN [Concomitant]
     Dosage: TABS
  3. SPIRONOLACTONE [Concomitant]
     Dosage: TABS
  4. LEVOTHYROXINE [Concomitant]
     Dosage: TABS
  5. SPIRIVA [Concomitant]
  6. ADVAIR [Concomitant]
  7. ARICEPT [Concomitant]
  8. OMEPRAZOLE [Concomitant]
  9. FOSAMAX [Concomitant]
  10. SYNTHROID [Concomitant]
  11. NORVASC [Concomitant]

REACTIONS (5)
  - Diverticulitis [Unknown]
  - Oral mucosal exfoliation [Recovered/Resolved]
  - Pruritus generalised [Not Recovered/Not Resolved]
  - Disorientation [Unknown]
  - Vomiting [Unknown]
